FAERS Safety Report 5794470-4 (Version None)
Quarter: 2008Q2

REPORT INFORMATION
  Report Type: 
  Country: None (occurrence: None)
  Receive Date: 20080630
  Receipt Date: 20080619
  Transmission Date: 20081010
  Serious: Yes (Other)
  Sender: FDA-Public Use
  Company Number: GB-ELI_LILLY_AND_COMPANY-GB200806004543

PATIENT
  Age: 60 Year
  Sex: Male

DRUGS (5)
  1. ZYPREXA [Suspect]
     Indication: SCHIZOPHRENIA
     Dosage: 10 MG, UNK
  2. RAMIPRIL [Concomitant]
     Dosage: 5 MG, UNK
  3. BISOPROLOL FUMARATE [Concomitant]
     Dosage: 1.25 MG, UNK
  4. ASPIRIN [Concomitant]
     Dosage: 75 MG, UNK
  5. SIMVASTATIN [Concomitant]
     Dosage: 40 KIU, UNK

REACTIONS (1)
  - MYOCARDIAL INFARCTION [None]
